FAERS Safety Report 6889217-4 (Version None)
Quarter: 2010Q3

REPORT INFORMATION
  Report Type: 
  Country: None (occurrence: None)
  Receive Date: 20100730
  Receipt Date: 20080117
  Transmission Date: 20110219
  Serious: No
  Sender: FDA-Public Use
  Company Number: US-PFIZER INC-2007099136

PATIENT
  Sex: Male
  Weight: 68.04 kg

DRUGS (3)
  1. LIPITOR [Suspect]
     Indication: PROPHYLAXIS
     Route: 048
     Dates: start: 20070824, end: 20071121
  2. PLAVIX [Suspect]
     Indication: PROPHYLAXIS
     Dates: start: 20070824, end: 20071121
  3. ISOSORBIDE MONONITRATE [Suspect]
     Indication: PROPHYLAXIS
     Dates: start: 20070824, end: 20071121

REACTIONS (2)
  - SKIN DISORDER [None]
  - SKIN NODULE [None]
